FAERS Safety Report 7638699-9 (Version None)
Quarter: 2011Q3

REPORT INFORMATION
  Report Type: 
  Country: None (occurrence: None)
  Receive Date: 20110715
  Receipt Date: 20110517
  Transmission Date: 20111222
  Serious: Yes (Disabling)
  Sender: FDA-Public Use
  Company Number: 2011-00543

PATIENT
  Age: 83 Year
  Sex: Female

DRUGS (3)
  1. RIFAMPICIN (RIFAMPCIN) [Concomitant]
  2. ETHAMBUTOL HYDROCHLORIDE [Suspect]
     Indication: BREATH SOUNDS ABNORMAL
     Dosage: 1200 MG (400 MG, EVERY 3 TABLET, EVERY NIGHT AT BEDTIME), PER ORAL
     Route: 048
     Dates: start: 20101001, end: 20110315
  3. AZITHROMYCIN [Concomitant]

REACTIONS (2)
  - BLINDNESS [None]
  - TOXICITY TO VARIOUS AGENTS [None]
